FAERS Safety Report 8005911-6 (Version None)
Quarter: 2011Q4

REPORT INFORMATION
  Report Type: 
  Country: None (occurrence: None)
  Receive Date: 20111223
  Receipt Date: 20111214
  Transmission Date: 20120403
  Serious: Yes (Other)
  Sender: FDA-Public Use
  Company Number: FR-ASTRAZENECA-2011SE76317

PATIENT

DRUGS (1)
  1. QUETIAPINE FUMARATE [Suspect]
     Indication: BIPOLAR I DISORDER
     Route: 048

REACTIONS (2)
  - HYPERTENSIVE CRISIS [None]
  - SYNCOPE [None]
